FAERS Safety Report 7215246-7 (Version None)
Quarter: 2011Q1

REPORT INFORMATION
  Report Type: 
  Country: None (occurrence: None)
  Receive Date: 20110107
  Receipt Date: 20101228
  Transmission Date: 20110831
  Serious: Yes (Disabling, Other)
  Sender: FDA-Public Use
  Company Number: PHBS2007JP20544

PATIENT
  Sex: Female
  Weight: 59 kg

DRUGS (33)
  1. PREDNISOLONE [Suspect]
     Dosage: 10 MG/DAY
     Route: 048
     Dates: start: 20071214, end: 20071215
  2. BONALON [Concomitant]
     Indication: OSTEOPOROSIS PROPHYLAXIS
     Dosage: 5MG/DAY
     Route: 048
     Dates: start: 20071031, end: 20071101
  3. OMEPRAL [Concomitant]
     Dosage: 20 MG/DAY
     Route: 048
  4. DIOVAN [Concomitant]
     Indication: HYPERTENSION
     Dosage: 40 MG/DAY
     Route: 048
     Dates: start: 20071206, end: 20071211
  5. GASTER D [Concomitant]
     Indication: GASTRITIS
     Dosage: 40 MG/DAY
     Route: 048
     Dates: start: 20071031, end: 20071111
  6. SLOW-K [Concomitant]
     Dosage: 2400 MG/DAY
     Route: 048
  7. UREPEARL [Concomitant]
     Indication: PRURITUS
     Route: 061
     Dates: start: 20071031
  8. PREDNISOLONE [Suspect]
     Dosage: 2.5 MG/DAY
     Route: 048
     Dates: start: 20071218, end: 20071219
  9. LASIX [Concomitant]
     Indication: OEDEMA
     Dosage: 20 MG/DAY
     Route: 048
     Dates: start: 20071109, end: 20071127
  10. PREDNISOLONE [Suspect]
     Indication: ACUTE LYMPHOCYTIC LEUKAEMIA
     Dosage: 60 MG/DAY
     Route: 048
     Dates: start: 20071031, end: 20071207
  11. PREDNISOLONE [Suspect]
     Dosage: 15 MG/DAY
     Route: 048
     Dates: start: 20071212, end: 20071213
  12. LAXOBERON [Concomitant]
     Indication: CONSTIPATION
     Dosage: 15 GTT
     Route: 048
     Dates: start: 20071031
  13. MAGNESIUM OXIDE [Concomitant]
     Indication: CONSTIPATION
     Dosage: 1.5 G/DAY
     Route: 048
     Dates: start: 20071031
  14. OMEPRAL [Concomitant]
     Indication: GASTROINTESTINAL HAEMORRHAGE
     Dosage: 10 MG/DAY
     Route: 048
     Dates: start: 20071113
  15. DEPAS [Concomitant]
     Indication: SLEEP DISORDER
     Route: 048
     Dates: start: 20071113, end: 20071126
  16. SLOW-K [Concomitant]
     Indication: HYPOKALAEMIA
     Dosage: 1800 MG/DAY
     Route: 048
     Dates: start: 20071124, end: 20071212
  17. STI571/CGP57148B [Suspect]
     Dosage: 200 MG/DAY
     Route: 048
     Dates: start: 20071225, end: 20080219
  18. ALLOPURINOL [Concomitant]
     Indication: HYPERURICAEMIA
     Dosage: 300 MG/DAY
     Route: 048
     Dates: start: 20071102, end: 20071111
  19. ULCERLMIN [Concomitant]
     Indication: GASTROINTESTINAL HAEMORRHAGE
     Dosage: 30 ML/DAY
     Route: 048
     Dates: start: 20071128
  20. AZUNOL [Concomitant]
     Indication: ECZEMA
     Route: 061
     Dates: start: 20071115, end: 20071216
  21. AZUNOL [Concomitant]
     Indication: PROPHYLAXIS
     Route: 049
     Dates: start: 20071031
  22. PREDNISOLONE [Suspect]
     Dosage: 5 MG/DAY
     Route: 048
     Dates: start: 20071216, end: 20071217
  23. ALDACTONE [Concomitant]
     Indication: OEDEMA
     Dosage: 25 MG/DAY
     Route: 048
     Dates: start: 20071109, end: 20071111
  24. LASIX [Concomitant]
     Dosage: 40 MG/DAY
     Route: 048
  25. BORRAZA [Concomitant]
     Indication: HAEMORRHOIDS
     Route: 061
     Dates: start: 20071128
  26. HYALEIN [Concomitant]
     Indication: CORNEAL DISORDER
     Route: 047
     Dates: start: 20071203
  27. STI571/CGP57148B [Suspect]
     Indication: ACUTE LYMPHOCYTIC LEUKAEMIA
     Dosage: 600 MG/DAY
     Route: 048
     Dates: start: 20071031, end: 20071130
  28. PREDNISOLONE [Suspect]
     Dosage: 30 MG/DAY
     Route: 048
     Dates: start: 20071208, end: 20071211
  29. ALLOPURINOL [Concomitant]
     Dosage: 100 MG/DAY
     Route: 048
  30. LENDORMIN [Concomitant]
     Indication: INSOMNIA
     Dosage: 0.25 MG/DAY
     Route: 048
     Dates: start: 20071031, end: 20071110
  31. OMEPRAL [Concomitant]
     Dosage: 20 MG/DAY
     Route: 048
  32. ANTEBATE [Concomitant]
     Indication: ECZEMA
     Route: 061
     Dates: start: 20071110, end: 20071216
  33. LIDOMEX [Concomitant]
     Indication: ECZEMA
     Route: 061
     Dates: start: 20071109, end: 20071216

REACTIONS (12)
  - FIBRIN DECREASED [None]
  - FIBRIN DEGRADATION PRODUCTS INCREASED [None]
  - PULMONARY OEDEMA [None]
  - RETICULOCYTE COUNT INCREASED [None]
  - GASTRIC HAEMORRHAGE [None]
  - BLOOD BILIRUBIN INCREASED [None]
  - PLATELET COUNT DECREASED [None]
  - HAEMOLYTIC ANAEMIA [None]
  - MELAENA [None]
  - FIBRIN D DIMER INCREASED [None]
  - HAEMOGLOBIN DECREASED [None]
  - DISSEMINATED INTRAVASCULAR COAGULATION [None]
